FAERS Safety Report 7968892-7 (Version None)
Quarter: 2011Q4

REPORT INFORMATION
  Report Type: 
  Country: None (occurrence: None)
  Receive Date: 20111209
  Receipt Date: 20111209
  Transmission Date: 20120403
  Serious: Yes (Hospitalization)
  Sender: FDA-Public Use
  Company Number: ES-BAYER-2011-118140

PATIENT
  Age: 65 Year
  Sex: Male
  Weight: 76 kg

DRUGS (6)
  1. RASILEZ [Concomitant]
     Indication: HYPERTENSION
     Route: 048
     Dates: start: 20100203
  2. ARTEDIL [Concomitant]
     Indication: HYPERTENSION
     Route: 048
     Dates: start: 20100203, end: 20110806
  3. ASPIRIN [Suspect]
     Indication: PROPHYLAXIS
     Route: 048
     Dates: start: 20100203, end: 20110806
  4. LANTUS [Concomitant]
     Indication: TYPE 2 DIABETES MELLITUS
     Route: 058
     Dates: start: 20110506
  5. ZEMPLAR [Concomitant]
     Indication: RENAL FAILURE CHRONIC
     Route: 048
     Dates: start: 20100203
  6. FUROSEMIDE [Concomitant]
     Route: 048
     Dates: start: 20100203

REACTIONS (2)
  - LARGE INTESTINAL HAEMORRHAGE [None]
  - HYPOTENSION [None]
